FAERS Safety Report 5426603-3 (Version None)
Quarter: 2007Q3

REPORT INFORMATION
  Report Type: 
  Country: None (occurrence: None)
  Receive Date: 20070827
  Receipt Date: 20070814
  Transmission Date: 20080115
  Serious: Yes (Other)
  Sender: FDA-Public Use
  Company Number: US-ELI_LILLY_AND_COMPANY-US200708003020

PATIENT
  Age: 55 Year
  Sex: Female

DRUGS (11)
  1. CYMBALTA [Suspect]
     Indication: DIABETIC NEUROPATHY
     Dosage: 120 MG, DAILY (1/D)
     Dates: start: 20061101
  2. CYMBALTA [Suspect]
     Dosage: 60 MG, DAILY (1/D)
     Dates: start: 20070401
  3. WELLBUTRIN [Concomitant]
     Indication: DEPRESSION
     Dosage: 300 MG, DAILY (1/D)
  4. WELLBUTRIN [Concomitant]
     Dosage: 150 MG, DAILY (1/D)
     Dates: start: 20070401
  5. INSULIN [Concomitant]
     Indication: DIABETES MELLITUS
     Dosage: UNK, DAILY (1/D)
  6. COZAAR [Concomitant]
  7. LIPITOR [Concomitant]
     Indication: BLOOD CHOLESTEROL
  8. LIBRAX [Concomitant]
  9. HORMONES AND RELATED AGENTS [Concomitant]
  10. ASPIRIN [Concomitant]
     Dosage: UNK, DAILY (1/D)
  11. METOPROLOL SUCCINATE [Concomitant]
     Indication: HEART RATE DECREASED
     Dosage: UNK, DAILY (1/D)

REACTIONS (6)
  - ABNORMAL DREAMS [None]
  - ACUTE MYOCARDIAL INFARCTION [None]
  - CONFUSIONAL STATE [None]
  - DYSKINESIA [None]
  - HALLUCINATION [None]
  - LOSS OF CONSCIOUSNESS [None]
